FAERS Safety Report 17477500 (Version 7)
Quarter: 2021Q2

REPORT INFORMATION
  Report Type: Report from Study
  Country: BR (occurrence: BR)
  Receive Date: 20200229
  Receipt Date: 20210527
  Transmission Date: 20210716
  Serious: Yes (Hospitalization, Other)
  Sender: FDA-Public Use
  Company Number: BR-ROCHE-2557959

PATIENT
  Age: 68 Year
  Sex: Male
  Weight: 162 kg

DRUGS (3)
  1. XL184 [Suspect]
     Active Substance: CABOZANTINIB
     Indication: HEPATOCELLULAR CARCINOMA
     Dosage: 14/FEB/2020, HE RECEIVED THE MOST RECENT DOSE OF CABOZANTINIB PRIOR TO THE EVENT ONSET
     Route: 048
     Dates: start: 20200129
  2. XL184 [Suspect]
     Active Substance: CABOZANTINIB
     Route: 048
  3. ATEZOLIZUMAB. [Suspect]
     Active Substance: ATEZOLIZUMAB
     Indication: HEPATOCELLULAR CARCINOMA
     Route: 042
     Dates: start: 20200129

REACTIONS (6)
  - Muscular weakness [Not Recovered/Not Resolved]
  - Accidental overdose [Unknown]
  - Aspartate aminotransferase increased [Unknown]
  - Asthenia [Recovered/Resolved]
  - Alanine aminotransferase increased [Unknown]
  - Aspartate aminotransferase increased [Not Recovered/Not Resolved]

NARRATIVE: CASE EVENT DATE: 20200129
